FAERS Safety Report 6302666-8 (Version None)
Quarter: 2009Q3

REPORT INFORMATION
  Report Type: 
  Country: None (occurrence: None)
  Receive Date: 20090810
  Receipt Date: 20090716
  Transmission Date: 20100115
  Serious: Yes (Other)
  Sender: FDA-Public Use
  Company Number: US-BAYER-200912622BCC

PATIENT
  Age: 69 Year
  Sex: Male
  Weight: 75 kg

DRUGS (2)
  1. ASPIRIN [Suspect]
     Indication: CARDIAC DISORDER
     Dosage: TOTAL DAILY DOSE: 325 MG  UNIT DOSE: 325 MG
     Route: 048
     Dates: end: 20010704
  2. ASPIRIN [Suspect]
     Dosage: CONSUMER TOOK 2 TO 3 PER DAY WHEN HE WAS COLD
     Route: 048
     Dates: end: 20010704

REACTIONS (3)
  - ASTHENIA [None]
  - BLOOD COUNT ABNORMAL [None]
  - HAEMATOCHEZIA [None]
